FAERS Safety Report 19666515 (Version 2)
Quarter: 2021Q3

REPORT INFORMATION
  Report Type: Spontaneous
  Country: JP (occurrence: JP)
  Receive Date: 20210806
  Receipt Date: 20210831
  Transmission Date: 20211014
  Serious: Yes (Other)
  Sender: FDA-Public Use
  Company Number: NVSJ2021JP008386

PATIENT
  Age: 31 Year
  Sex: Female

DRUGS (3)
  1. TRYPTANOL [Suspect]
     Active Substance: AMITRIPTYLINE
     Indication: HEADACHE
     Dosage: UNK
     Route: 065
  2. KESIMPTA [Suspect]
     Active Substance: OFATUMUMAB
     Dosage: 20 MG, QMO
     Route: 058
     Dates: start: 20210623
  3. KESIMPTA [Suspect]
     Active Substance: OFATUMUMAB
     Indication: PROGRESSIVE RELAPSING MULTIPLE SCLEROSIS
     Dosage: 20 MG, QMO
     Route: 058
     Dates: start: 20210526

REACTIONS (12)
  - Back pain [Unknown]
  - Eosinophil count increased [Recovered/Resolved]
  - Enterocolitis [Recovered/Resolved]
  - Diarrhoea [Recovered/Resolved]
  - Vomiting [Unknown]
  - Arthralgia [Recovered/Resolved]
  - Lhermitte^s sign [Unknown]
  - Fatigue [Unknown]
  - Gamma-glutamyltransferase increased [Recovering/Resolving]
  - Migraine [Unknown]
  - Alanine aminotransferase increased [Recovered/Resolved]
  - Neck pain [Unknown]

NARRATIVE: CASE EVENT DATE: 20210526
